FAERS Safety Report 9962203 (Version 1)
Quarter: 2014Q1

REPORT INFORMATION
  Report Type: Report from Study
  Country: US (occurrence: US)
  Receive Date: 20140305
  Receipt Date: 20140305
  Transmission Date: 20141002
  Serious: No
  Sender: FDA-Public Use
  Company Number: US-ABBVIE-13P-163-1114869-00

PATIENT
  Age: 72 Year
  Sex: Female

DRUGS (15)
  1. HUMIRA [Suspect]
     Indication: CROHN^S DISEASE
     Dates: start: 20130111, end: 20130111
  2. HUMIRA [Suspect]
     Dates: start: 20130125, end: 20130125
  3. HUMIRA [Suspect]
     Dates: start: 20130208
  4. TRIAMTERENE [Concomitant]
     Indication: HYPERTENSION
  5. ASPIRIN [Concomitant]
     Indication: PRODUCT USED FOR UNKNOWN INDICATION
  6. ALLOPURINOL [Concomitant]
     Indication: GOUT
  7. APRISO [Concomitant]
     Indication: DIARRHOEA
  8. PREDNISONE [Concomitant]
     Indication: PRODUCT USED FOR UNKNOWN INDICATION
  9. LORAZEPAM [Concomitant]
     Indication: PRODUCT USED FOR UNKNOWN INDICATION
  10. LANSOPRAZOLE [Concomitant]
     Indication: CROHN^S DISEASE
  11. NIASPAN [Concomitant]
     Indication: BLOOD CHOLESTEROL INCREASED
  12. PRAVASTATIN [Concomitant]
     Indication: BLOOD CHOLESTEROL INCREASED
  13. MAGNESIUM OXIDE [Concomitant]
     Indication: PRODUCT USED FOR UNKNOWN INDICATION
  14. QUESTRAN [Concomitant]
     Indication: BLOOD CHOLESTEROL INCREASED
  15. ADVAIR [Concomitant]
     Indication: BRONCHITIS
     Route: 055

REACTIONS (1)
  - Injection site bruising [Recovering/Resolving]
